FAERS Safety Report 6098437-0 (Version None)
Quarter: 2009Q1

REPORT INFORMATION
  Report Type: 
  Country: None (occurrence: None)
  Receive Date: 20090302
  Receipt Date: 20090219
  Transmission Date: 20090719
  Serious: Yes (Death, Life-Threatening, Hospitalization)
  Sender: FDA-Public Use
  Company Number: JP-AMGEN-US325003

PATIENT
  Sex: Female
  Weight: 52 kg

DRUGS (11)
  1. ENBREL [Suspect]
     Indication: RHEUMATOID ARTHRITIS
     Dosage: 25 MG TWICE WEEKLY; SOLUTION FOR INJECTION
     Route: 058
     Dates: start: 20080630, end: 20080926
  2. ADALAT [Concomitant]
     Indication: HYPERTENSION
     Route: 048
  3. ANPLAG [Concomitant]
     Indication: ARTERIOSCLEROSIS OBLITERANS
     Route: 048
  4. THYRADIN [Concomitant]
     Indication: HYPOTHYROIDISM
     Route: 048
  5. BROTIZOLAM [Concomitant]
     Indication: INSOMNIA
     Route: 048
  6. ZYLORIC [Concomitant]
     Indication: HYPERURICAEMIA
     Route: 048
  7. CRAVIT [Concomitant]
     Indication: ARTHRITIS BACTERIAL
     Route: 048
  8. CYANOCOBALAMIN [Concomitant]
     Indication: NEUROPATHY PERIPHERAL
     Route: 048
  9. MUCOSTA [Concomitant]
     Indication: GASTRITIS
     Route: 048
  10. CORTRIL [Concomitant]
     Indication: ADRENAL INSUFFICIENCY
     Route: 048
     Dates: start: 20060530, end: 20080926
  11. URSO 250 [Concomitant]
     Indication: LIVER FUNCTION TEST ABNORMAL
     Route: 048

REACTIONS (2)
  - PYREXIA [None]
  - SUBDURAL HAEMORRHAGE [None]
